FAERS Safety Report 16793127 (Version 1)
Quarter: 2019Q3

REPORT INFORMATION
  Report Type: Spontaneous
  Country: US (occurrence: US)
  Receive Date: 20190911
  Receipt Date: 20190911
  Transmission Date: 20191005
  Serious: Yes (Death, Other)
  Sender: FDA-Public Use
  Company Number: US-LUPIN PHARMACEUTICALS INC.-2019-05786

PATIENT
  Age: 57 Year
  Sex: Female

DRUGS (7)
  1. AMIKACIN. [Concomitant]
     Active Substance: AMIKACIN
     Indication: NOCARDIOSIS
  2. MOXIFLOXACIN. [Suspect]
     Active Substance: MOXIFLOXACIN
     Indication: CELLULITIS
     Dosage: UNK
     Route: 065
  3. CLARITHROMYCIN. [Suspect]
     Active Substance: CLARITHROMYCIN
     Indication: CELLULITIS
     Dosage: UNK
     Route: 065
  4. AMIKACIN. [Concomitant]
     Active Substance: AMIKACIN
     Indication: CELLULITIS
     Dosage: UNK
     Route: 065
  5. MOXIFLOXACIN. [Suspect]
     Active Substance: MOXIFLOXACIN
     Indication: MYCOBACTERIUM CHELONAE INFECTION
  6. AMIKACIN. [Concomitant]
     Active Substance: AMIKACIN
     Indication: MYCOBACTERIUM CHELONAE INFECTION
  7. CLARITHROMYCIN. [Suspect]
     Active Substance: CLARITHROMYCIN
     Indication: MYCOBACTERIUM CHELONAE INFECTION

REACTIONS (3)
  - Drug ineffective for unapproved indication [Fatal]
  - Electrocardiogram QT prolonged [Unknown]
  - Off label use [Unknown]
